FAERS Safety Report 9008170 (Version 1)
Quarter: 2013Q1

REPORT INFORMATION
  Report Type: Spontaneous
  Country: DE (occurrence: DE)
  Receive Date: 20130111
  Receipt Date: 20130111
  Transmission Date: 20140127
  Serious: No
  Sender: FDA-Public Use
  Company Number: DE-US-EMD SERONO, INC.-7186083

PATIENT
  Age: 33 Year
  Sex: Female

DRUGS (3)
  1. REBIF [Suspect]
     Indication: MULTIPLE SCLEROSIS
     Route: 058
     Dates: start: 20120310, end: 201209
  2. REBIF [Suspect]
     Route: 058
     Dates: start: 201209
  3. TRIGOA (ETHINYL ESTRADIOL, LEVONORGESTREL) [Concomitant]
     Indication: CONTRACEPTION
     Route: 048

REACTIONS (7)
  - Chills [Not Recovered/Not Resolved]
  - Feeling abnormal [Not Recovered/Not Resolved]
  - Joint lock [Not Recovered/Not Resolved]
  - Muscle spasms [Not Recovered/Not Resolved]
  - Mood swings [Not Recovered/Not Resolved]
  - Blister [Not Recovered/Not Resolved]
  - Acne [Not Recovered/Not Resolved]
